FAERS Safety Report 11238649 (Version 2)
Quarter: 2015Q3

REPORT INFORMATION
  Report Type: Report from Study
  Country: BR (occurrence: BR)
  Receive Date: 20150706
  Receipt Date: 20150714
  Transmission Date: 20151125
  Serious: Yes (Other)
  Sender: FDA-Public Use
  Company Number: PHHY2015BR077819

PATIENT
  Sex: Female

DRUGS (1)
  1. ACLASTA [Suspect]
     Active Substance: ZOLEDRONIC ACID
     Indication: OSTEOPOROSIS
     Dosage: 1 DF, PER YEAR
     Route: 042
     Dates: start: 20140520

REACTIONS (4)
  - Hand fracture [Unknown]
  - Postoperative wound infection [Unknown]
  - Bone decalcification [Unknown]
  - Fall [Unknown]

NARRATIVE: CASE EVENT DATE: 201505
